FAERS Safety Report 23817100 (Version 1)
Quarter: 2024Q2

REPORT INFORMATION
  Report Type: Spontaneous
  Country: IT (occurrence: IT)
  Receive Date: 20240504
  Receipt Date: 20240504
  Transmission Date: 20240716
  Serious: Yes (Other)
  Sender: FDA-Public Use
  Company Number: None

PATIENT
  Age: 66 Year
  Sex: Male
  Weight: 94 kg

DRUGS (1)
  1. TAMSULOSIN [Suspect]
     Active Substance: TAMSULOSIN
     Indication: Dysuria
     Route: 048
     Dates: start: 20210222, end: 20231001

REACTIONS (2)
  - Erectile dysfunction [Recovered/Resolved with Sequelae]
  - Retrograde ejaculation [Recovered/Resolved with Sequelae]

NARRATIVE: CASE EVENT DATE: 20210301
